FAERS Safety Report 6310781-8 (Version None)
Quarter: 2009Q3

REPORT INFORMATION
  Report Type: 
  Country: None (occurrence: None)
  Receive Date: 20090812
  Receipt Date: 20090805
  Transmission Date: 20100115
  Serious: Yes (Life-Threatening, Hospitalization)
  Sender: FDA-Public Use
  Company Number: CLOF-10794

PATIENT
  Age: 74 Year
  Sex: Male

DRUGS (16)
  1. CLOFARABINE AND/OR ARA-C (CODE NOT BROKEN) SOLUTION FOR INFUSION [Suspect]
     Indication: ACUTE MYELOID LEUKAEMIA
     Dosage: BLINDED, INFORMATION WITHHELD
     Dates: start: 20071203, end: 20071203
  2. CYTARABINE [Suspect]
     Indication: ACUTE MYELOID LEUKAEMIA
     Dosage: 1 G/M2
     Dates: start: 20071203, end: 20071203
  3. ALLOPURINOL [Concomitant]
  4. ASPIRIN [Concomitant]
  5. CENTRUM (VITAMINS NOS, MINERALS NOS) [Concomitant]
  6. COLCHICINE (COLCHICINE) [Concomitant]
  7. FLOMAX (MORNIFLUMATE) [Concomitant]
  8. GLIPIZIDE [Concomitant]
  9. LIPITOR [Concomitant]
  10. HYDROCHLOROTHIAZIDE LISINOPRIL (HYDROCHLOROTHIAZIDE) [Concomitant]
  11. NORVASC [Concomitant]
  12. PREVACID [Concomitant]
  13. EPINEPHRINE (EPINEPHRINE BITARTRATE) [Concomitant]
  14. DECADRON (DEXAMETHASONE SODIUM SUCCINATE) [Concomitant]
  15. SODIUM BICARBONATE IN PLASTIC CONTAINER [Concomitant]
  16. ALBUMIN (ALBUMIN HUMAN, POTASSIUM) [Concomitant]

REACTIONS (35)
  - AORTIC VALVE SCLEROSIS [None]
  - ARRHYTHMIA [None]
  - ASTHENIA [None]
  - AUTONOMIC NEUROPATHY [None]
  - BLOOD GLUCOSE INCREASED [None]
  - BLOOD PH DECREASED [None]
  - BRADYCARDIA [None]
  - CARDIOGENIC SHOCK [None]
  - CARDIOMEGALY [None]
  - CONVULSION [None]
  - DIASTOLIC DYSFUNCTION [None]
  - FATIGUE [None]
  - HAEMATOCRIT DECREASED [None]
  - HAEMOGLOBIN DECREASED [None]
  - HYPERSENSITIVITY [None]
  - HYPONATRAEMIA [None]
  - HYPOTENSION [None]
  - INFECTION [None]
  - INFUSION RELATED REACTION [None]
  - LOSS OF CONSCIOUSNESS [None]
  - MEAN CELL VOLUME INCREASED [None]
  - METABOLIC ACIDOSIS [None]
  - MITRAL VALVE CALCIFICATION [None]
  - MITRAL VALVE INCOMPETENCE [None]
  - MULTI-ORGAN FAILURE [None]
  - MYOCARDIAL ISCHAEMIA [None]
  - RENAL FAILURE ACUTE [None]
  - RESPIRATORY ACIDOSIS [None]
  - RESPIRATORY DISTRESS [None]
  - SEPSIS [None]
  - SEPTIC SHOCK [None]
  - TRICUSPID VALVE INCOMPETENCE [None]
  - VENTRICULAR DYSFUNCTION [None]
  - VENTRICULAR HYPOKINESIA [None]
  - WHITE BLOOD CELL COUNT DECREASED [None]
